FAERS Safety Report 20796803 (Version 1)
Quarter: 2022Q2

REPORT INFORMATION
  Report Type: Spontaneous
  Country: US (occurrence: US)
  Receive Date: 20220506
  Receipt Date: 20220506
  Transmission Date: 20220721
  Serious: No
  Sender: FDA-Public Use
  Company Number: US-GLAXOSMITHKLINE-US2022073157

PATIENT
  Sex: Female

DRUGS (1)
  1. BENLYSTA [Suspect]
     Active Substance: BELIMUMAB
     Indication: Product used for unknown indication
     Dosage: UNK
     Dates: start: 202201, end: 202203

REACTIONS (4)
  - Sinusitis [Recovered/Resolved]
  - Gingival pruritus [Unknown]
  - Gingival discomfort [Unknown]
  - Gingival abscess [Unknown]

NARRATIVE: CASE EVENT DATE: 20220101
